FAERS Safety Report 25529435 (Version 1)
Quarter: 2025Q3

REPORT INFORMATION
  Report Type: Spontaneous
  Country: JP (occurrence: JP)
  Receive Date: 20250708
  Receipt Date: 20250708
  Transmission Date: 20251021
  Serious: Yes (Other)
  Sender: PFIZER
  Company Number: JP-PFIZER INC-202500134948

PATIENT
  Age: 92 Year
  Sex: Male

DRUGS (8)
  1. PAXLOVID [Suspect]
     Active Substance: NIRMATRELVIR\RITONAVIR
     Route: 048
  2. TELMISARTAN [Concomitant]
     Active Substance: TELMISARTAN
  3. NIFEDIPINE [Concomitant]
     Active Substance: NIFEDIPINE
  4. ASPIRIN [Concomitant]
     Active Substance: ASPIRIN
     Dosage: UNK, ALTERNATE DAY
  5. ATORVASTATIN [Concomitant]
     Active Substance: ATORVASTATIN
  6. SENNOSIDES A AND B [Concomitant]
     Active Substance: SENNOSIDES A AND B
  7. QUETIAPINE [Concomitant]
     Active Substance: QUETIAPINE
  8. VIBEGRON [Concomitant]
     Active Substance: VIBEGRON

REACTIONS (4)
  - Delirium [Unknown]
  - Abnormal sensation in eye [Unknown]
  - Dyskinesia [Unknown]
  - Eye disorder [Unknown]
